FAERS Safety Report 6440816-3 (Version None)
Quarter: 2009Q4

REPORT INFORMATION
  Report Type: 
  Country: None (occurrence: None)
  Receive Date: 20091116
  Receipt Date: 20091109
  Transmission Date: 20100525
  Serious: Yes (Other)
  Sender: FDA-Public Use
  Company Number: BE-JNJFOC-20091102535

PATIENT
  Sex: Female
  Weight: 46.5 kg

DRUGS (5)
  1. GALANTAMINE HYDROBROMIDE [Suspect]
     Route: 048
  2. GALANTAMINE HYDROBROMIDE [Suspect]
     Indication: DEMENTIA ALZHEIMER'S TYPE
     Route: 048
  3. LIPANTHYL [Concomitant]
     Route: 048
  4. ACTONEL [Concomitant]
     Route: 065
  5. DOCLORMETA [Concomitant]
     Dosage: 2 MG 1/3 TABLET A DAY
     Route: 048

REACTIONS (5)
  - AGEUSIA [None]
  - ANOSMIA [None]
  - APHTHOUS STOMATITIS [None]
  - DECREASED APPETITE [None]
  - ORAL MUCOSAL DISCOLOURATION [None]
